FAERS Safety Report 18264895 (Version 2)
Quarter: 2021Q3

REPORT INFORMATION
  Report Type: Spontaneous
  Country: FR (occurrence: FR)
  Receive Date: 20200915
  Receipt Date: 20210920
  Transmission Date: 20211014
  Serious: Yes (Hospitalization)
  Sender: FDA-Public Use
  Company Number: FR-ROCHE-2675305

PATIENT
  Age: 51 Year
  Sex: Male

DRUGS (3)
  1. REMICADE [Suspect]
     Active Substance: INFLIXIMAB
     Indication: PRODUCT USED FOR UNKNOWN INDICATION
     Route: 042
  2. CELLCEPT [Suspect]
     Active Substance: MYCOPHENOLATE MOFETIL\MYCOPHENOLATE MOFETIL HYDROCHLORIDE
     Indication: BEHCET^S SYNDROME
     Route: 065
     Dates: start: 2014, end: 2017
  3. FLIXABI [Suspect]
     Active Substance: INFLIXIMAB
     Indication: BEHCET^S SYNDROME
     Route: 065
     Dates: start: 20181207, end: 20190517

REACTIONS (11)
  - Urinary tract infection [Unknown]
  - Weight increased [Unknown]
  - Product use in unapproved indication [Unknown]
  - Acute kidney injury [Unknown]
  - Diarrhoea [Unknown]
  - Malaise [Unknown]
  - Rectal haemorrhage [Unknown]
  - Vomiting [Unknown]
  - Myocardial necrosis [Unknown]
  - Hepatic cytolysis [Unknown]
  - Off label use [Unknown]

NARRATIVE: CASE EVENT DATE: 20190529
